FAERS Safety Report 9868135 (Version 1)
Quarter: 2014Q1

REPORT INFORMATION
  Report Type: Spontaneous
  Country: US (occurrence: US)
  Receive Date: 20140204
  Receipt Date: 20140204
  Transmission Date: 20141002
  Serious: No
  Sender: FDA-Public Use
  Company Number: US-TEVA-459875USA

PATIENT
  Age: 49 Year
  Sex: Male

DRUGS (1)
  1. QVAR [Suspect]
     Route: 055

REACTIONS (5)
  - Dyspnoea [Recovered/Resolved]
  - Hyperhidrosis [Recovered/Resolved]
  - Insomnia [Recovered/Resolved]
  - Hyperthermia [Recovered/Resolved]
  - Palpitations [Recovered/Resolved]
